FAERS Safety Report 4376064-0 (Version None)
Quarter: 2004Q2

REPORT INFORMATION
  Report Type: 
  Country: None (occurrence: None)
  Receive Date: 20040611
  Receipt Date: 20040216
  Transmission Date: 20050107
  Serious: Yes (Death, Hospitalization, Other)
  Sender: FDA-Public Use
  Company Number: 200410421JP

PATIENT
  Age: 21 Year
  Sex: Female
  Weight: 43 kg

DRUGS (6)
  1. ARAVA [Suspect]
     Indication: RHEUMATOID ARTHRITIS
     Route: 048
     Dates: start: 20040205, end: 20040215
  2. PREDNISOLONE [Concomitant]
     Indication: RHEUMATOID ARTHRITIS
     Route: 048
     Dates: start: 20000831, end: 20040215
  3. MARZULENE S [Concomitant]
     Route: 048
     Dates: start: 20000809, end: 20040215
  4. RHEUMATREX [Concomitant]
     Indication: RHEUMATOID ARTHRITIS
     Route: 048
     Dates: start: 20000831, end: 20040204
  5. FOLIAMIN [Concomitant]
     Indication: RHEUMATOID ARTHRITIS
     Route: 048
     Dates: start: 20000831, end: 20040204
  6. VOLTAREN - SLOW RELEASE ^CIBA-GEIGY^ [Concomitant]
     Indication: RHEUMATOID ARTHRITIS
     Route: 048
     Dates: start: 20031210, end: 20040215

REACTIONS (39)
  - ACUTE RESPIRATORY DISTRESS SYNDROME [None]
  - ADRENAL INSUFFICIENCY [None]
  - AGRANULOCYTOSIS [None]
  - ANAEMIA [None]
  - BACILLUS INFECTION [None]
  - BRONCHITIS [None]
  - CIRCULATORY COLLAPSE [None]
  - COMA [None]
  - DIARRHOEA [None]
  - DISSEMINATED INTRAVASCULAR COAGULATION [None]
  - EPSTEIN-BARR VIRUS INFECTION [None]
  - GASTRIC HAEMORRHAGE [None]
  - GASTRITIS EROSIVE [None]
  - GENERALISED ERYTHEMA [None]
  - GLOMERULAR VASCULAR DISORDER [None]
  - HAEMODIALYSIS [None]
  - INFLAMMATORY BOWEL DISEASE [None]
  - INTERSTITIAL LUNG DISEASE [None]
  - ISCHAEMIC HEPATITIS [None]
  - LIVER DISORDER [None]
  - NASOPHARYNGITIS [None]
  - NEONATAL RESPIRATORY DISTRESS SYNDROME [None]
  - NODULE [None]
  - OCULAR HYPERAEMIA [None]
  - PLATELET COUNT DECREASED [None]
  - PNEUMONIA BACTERIAL [None]
  - PSEUDOMONAS INFECTION [None]
  - PULMONARY ALVEOLAR HAEMORRHAGE [None]
  - PULMONARY EMBOLISM [None]
  - PULMONARY OEDEMA [None]
  - RASH [None]
  - RENAL CORTICAL NECROSIS [None]
  - RENAL TUBULAR NECROSIS [None]
  - SEPSIS [None]
  - SHOCK [None]
  - THROMBOSIS [None]
  - TONSILLAR DISORDER [None]
  - TONSILLITIS [None]
  - TRACHEITIS [None]
